FAERS Safety Report 25435855 (Version 1)
Quarter: 2025Q2

REPORT INFORMATION
  Report Type: Spontaneous
  Country: US (occurrence: None)
  Receive Date: 20250612
  Receipt Date: 20250612
  Transmission Date: 20250717
  Serious: Yes (Hospitalization, Other)
  Sender: FDA-CTU
  Company Number: None

PATIENT
  Age: 53 Year
  Sex: Male
  Weight: 93 kg

DRUGS (7)
  1. CABENUVA [Suspect]
     Active Substance: CABOTEGRAVIR\RILPIVIRINE
     Indication: HIV infection
     Route: 030
     Dates: start: 20241011, end: 20250113
  2. TESTOSTERONE CYPIONATE [Concomitant]
     Active Substance: TESTOSTERONE CYPIONATE
     Dates: start: 20241021
  3. TOPIRAMATE [Concomitant]
     Active Substance: TOPIRAMATE
     Dates: start: 20240819
  4. LIDOCAINE [Concomitant]
     Active Substance: LIDOCAINE
     Dates: start: 20241011
  5. DOLUTEGRAVIR SODIUM\RILPIVIRINE HYDROCHLORIDE [Concomitant]
     Active Substance: DOLUTEGRAVIR SODIUM\RILPIVIRINE HYDROCHLORIDE
     Dates: start: 20240905, end: 20241010
  6. ESCITALOPRAM OXALATE [Concomitant]
     Active Substance: ESCITALOPRAM OXALATE
     Dates: start: 20241008, end: 20241210
  7. SILDENAFIL [Concomitant]
     Active Substance: SILDENAFIL
     Dates: start: 20240429, end: 20241218

REACTIONS (6)
  - Incorrect dose administered [None]
  - Pain in extremity [None]
  - Muscular weakness [None]
  - Blood creatine phosphokinase increased [None]
  - Myositis [None]
  - Myopathy [None]

NARRATIVE: CASE EVENT DATE: 20241108
